FAERS Safety Report 12040121 (Version 1)
Quarter: 2016Q1

REPORT INFORMATION
  Report Type: Spontaneous
  Country: US (occurrence: US)
  Receive Date: 20160208
  Receipt Date: 20160208
  Transmission Date: 20160526
  Serious: No
  Sender: FDA-Public Use
  Company Number: US-AMAG PHARMACEUTICALS, INC.-AMAG201501179

PATIENT
  Age: 41 Year
  Sex: Female
  Weight: 87.98 kg

DRUGS (5)
  1. MAKENA [Suspect]
     Active Substance: HYDROXYPROGESTERONE CAPROATE
     Indication: PRODUCT USED FOR UNKNOWN INDICATION
     Dosage: 250 MG, WEEKLY
     Route: 030
     Dates: start: 20151001, end: 20151016
  2. PROGESTERONE. [Concomitant]
     Active Substance: PROGESTERONE
     Dosage: 200 MG, QHS
     Route: 067
     Dates: start: 20151023
  3. VITAFUSION PRENATAL [Concomitant]
     Indication: PREGNANCY
     Dosage: 1 UNK, QD
     Dates: start: 20150501
  4. DOXYLAMINE [Concomitant]
     Active Substance: DOXYLAMINE
     Indication: NAUSEA
     Dosage: 500 MG, QD
     Dates: start: 20150612, end: 20150828
  5. PROGESTERONE. [Concomitant]
     Active Substance: PROGESTERONE
     Dosage: 200 MG, QHS
     Route: 067
     Dates: start: 20150526, end: 20150828

REACTIONS (1)
  - Hypersensitivity [Recovering/Resolving]

NARRATIVE: CASE EVENT DATE: 20151001
